FAERS Safety Report 17206267 (Version 2)
Quarter: 2020Q1

REPORT INFORMATION
  Report Type: Spontaneous
  Country: US (occurrence: US)
  Receive Date: 20191227
  Receipt Date: 20200227
  Transmission Date: 20200409
  Serious: Yes (Death, Other)
  Sender: FDA-Public Use
  Company Number: US-BRISTOL-MYERS SQUIBB COMPANY-BMS-2019-123918

PATIENT
  Sex: Female
  Weight: 59 kg

DRUGS (4)
  1. OPDIVO [Suspect]
     Active Substance: NIVOLUMAB
     Indication: MESOTHELIOMA MALIGNANT
     Dosage: 360 MILLIGRAM, Q3WK (40 MG AND 240 MG SINGLE-DOSE VIALS)
     Route: 042
     Dates: start: 20190910, end: 20191022
  2. OXYCODONE [Concomitant]
     Active Substance: OXYCODONE
     Indication: PRODUCT USED FOR UNKNOWN INDICATION
     Dosage: UNK
     Route: 065
  3. TYLENOL [Concomitant]
     Active Substance: ACETAMINOPHEN
     Indication: PRODUCT USED FOR UNKNOWN INDICATION
     Dosage: UNK
     Route: 065
  4. YERVOY [Suspect]
     Active Substance: IPILIMUMAB
     Indication: MESOTHELIOMA MALIGNANT
     Dosage: 60 MILLIGRAM, Q3WK (50 MG SINGLE-DOSE VIALS)
     Route: 042
     Dates: start: 20190910, end: 20191022

REACTIONS (2)
  - Death [Fatal]
  - Intentional product use issue [Unknown]
